APPROVED DRUG PRODUCT: MOXIDECTIN
Active Ingredient: MOXIDECTIN
Strength: 2MG
Dosage Form/Route: TABLET;ORAL
Application: N210867 | Product #001
Applicant: MEDICINES DEVELOPMENT FOR GLOBAL HEALTH
Approved: Jun 13, 2018 | RLD: Yes | RS: Yes | Type: RX

EXCLUSIVITY:
Code: NPP | Date: Feb 7, 2028